FAERS Safety Report 5750511-1 (Version None)
Quarter: 2008Q2

REPORT INFORMATION
  Report Type: 
  Country: None (occurrence: None)
  Receive Date: 20080523
  Receipt Date: 20080523
  Transmission Date: 20081010
  Serious: Yes (Other)
  Sender: FDA-Public Use
  Company Number: None

PATIENT
  Age: 43 Year
  Sex: Male
  Weight: 110.2241 kg

DRUGS (2)
  1. AMBIEN CR [Suspect]
     Indication: INSOMNIA
     Dosage: 10MG AS NEEDED PO
     Route: 048
     Dates: start: 20051101, end: 20061223
  2. EFFEXOR [Concomitant]

REACTIONS (2)
  - ABNORMAL BEHAVIOUR [None]
  - ANTEROGRADE AMNESIA [None]
